FAERS Safety Report 23377749 (Version 1)
Quarter: 2024Q1

REPORT INFORMATION
  Report Type: Spontaneous
  Country: US (occurrence: US)
  Receive Date: 20240108
  Receipt Date: 20240108
  Transmission Date: 20240409
  Serious: No
  Sender: FDA-Public Use
  Company Number: US-SANDOZ-SDZ2024US001752

PATIENT
  Sex: Female

DRUGS (1)
  1. AMOXICILLIN\CLAVULANATE POTASSIUM [Suspect]
     Active Substance: AMOXICILLIN\CLAVULANATE POTASSIUM
     Indication: Kidney infection
     Dosage: 875-125 MG (1 TABLET EVERY 12 HOURS (TOOK 2 TABLETS)
     Route: 065
     Dates: start: 20230923

REACTIONS (5)
  - Illness [Unknown]
  - Malaise [Unknown]
  - Productive cough [Unknown]
  - Influenza [Unknown]
  - Illness [Unknown]
